FAERS Safety Report 9161986 (Version 1)
Quarter: 2013Q1

REPORT INFORMATION
  Report Type: Spontaneous
  Country: US (occurrence: None)
  Receive Date: 20130225
  Receipt Date: 20130225
  Transmission Date: 20140127
  Serious: Yes (Disabling, Other)
  Sender: FDA-Public Use
  Company Number: AUR-APL-2012-02712

PATIENT
  Age: 55 Year
  Sex: 0

DRUGS (4)
  1. LEVOFLOXACIN (LEVOFLOXACIN) [Suspect]
     Indication: BREAST CYST
     Dates: start: 201112, end: 201201
  2. LISINOPRIL HCTZ (PRINZIDE/00977901/) [Concomitant]
  3. NEXIUM (ESOMEPRAZOLE MAGNESIUM) [Concomitant]
  4. POTASSIUM (POTASSIUM) [Concomitant]

REACTIONS (5)
  - Tendonitis [None]
  - Periarthritis [None]
  - Rotator cuff syndrome [None]
  - Pain [None]
  - Immobile [None]
